FAERS Safety Report 18101330 (Version 1)
Quarter: 2020Q3

REPORT INFORMATION
  Report Type: Spontaneous
  Country: JP (occurrence: JP)
  Receive Date: 20200801
  Receipt Date: 20200801
  Transmission Date: 20201103
  Serious: Yes (Other)
  Sender: FDA-Public Use
  Company Number: JP-VISTAPHARM, INC.-VER202007-001304

PATIENT
  Age: 54 Year
  Sex: Female

DRUGS (3)
  1. IMMUNOGLOBULIN [Concomitant]
     Indication: THROMBOCYTOPENIC PURPURA
     Dosage: UNKNOWN
     Route: 042
  2. PREDNISOLONE. [Suspect]
     Active Substance: PREDNISOLONE
     Indication: THROMBOCYTOPENIC PURPURA
     Dosage: UNKNOWN
  3. NIVOLUMAB [Concomitant]
     Active Substance: NIVOLUMAB
     Indication: PANCREATIC CARCINOMA
     Dosage: 240 MG EVERY 2 WEEKS (ADMINISTRATED TWICE)

REACTIONS (2)
  - Gastritis haemorrhagic [Unknown]
  - Gastric ulcer [Unknown]
